FAERS Safety Report 9592859 (Version 1)
Quarter: 2013Q4

REPORT INFORMATION
  Report Type: Spontaneous
  Country: CA (occurrence: CA)
  Receive Date: 20131004
  Receipt Date: 20131004
  Transmission Date: 20140711
  Serious: Yes (Other)
  Sender: FDA-Public Use
  Company Number: CA-NOVOPROD-388698

PATIENT
  Sex: Female

DRUGS (2)
  1. VICTOZA [Suspect]
     Indication: TYPE 2 DIABETES MELLITUS
     Route: 058
     Dates: start: 20130401
  2. SYNTHROID [Concomitant]
     Route: 048
     Dates: start: 20130401

REACTIONS (1)
  - Thyroid cancer [Recovering/Resolving]
